FAERS Safety Report 11590311 (Version 2)
Quarter: 2015Q4

REPORT INFORMATION
  Report Type: Spontaneous
  Country: FR (occurrence: FR)
  Receive Date: 20151002
  Receipt Date: 20151013
  Transmission Date: 20160304
  Serious: Yes (Other)
  Sender: FDA-Public Use
  Company Number: FR-PFIZER INC-2015323221

PATIENT
  Age: 34 Year
  Sex: Female

DRUGS (1)
  1. DOSTINEX [Suspect]
     Active Substance: CABERGOLINE
     Indication: LACTATION INHIBITION THERAPY
     Dosage: 0.5 MG TABLET, 8 TABLETS IN ONE SINGLE INTAKE
     Route: 048
     Dates: start: 20150902

REACTIONS (4)
  - Muscle spasms [Recovered/Resolved]
  - Accidental overdose [Recovered/Resolved]
  - Product use issue [Recovered/Resolved]
  - Somnolence [Recovered/Resolved]

NARRATIVE: CASE EVENT DATE: 20150902
